FAERS Safety Report 17259457 (Version 1)
Quarter: 2020Q1

REPORT INFORMATION
  Report Type: Spontaneous
  Country: US (occurrence: US)
  Receive Date: 20200110
  Receipt Date: 20200110
  Transmission Date: 20200409
  Serious: Yes (Other)
  Sender: FDA-Public Use
  Company Number: US-PFIZER INC-2019490812

PATIENT
  Age: 25 Year
  Sex: Male

DRUGS (1)
  1. FENTANYL CITRATE. [Suspect]
     Active Substance: FENTANYL CITRATE
     Dosage: UNK
     Route: 042

REACTIONS (9)
  - Amnestic disorder [Not Recovered/Not Resolved]
  - Vomiting [Unknown]
  - Sinus tachycardia [Recovered/Resolved]
  - Anterograde amnesia [Not Recovered/Not Resolved]
  - Leukocytosis [Recovered/Resolved]
  - Emotional distress [Recovered/Resolved]
  - Drug abuse [Unknown]
  - Disorientation [Recovered/Resolved]
  - Hepatic enzyme abnormal [Recovered/Resolved]
